FAERS Safety Report 5502773-3 (Version None)
Quarter: 2007Q4

REPORT INFORMATION
  Report Type: 
  Country: None (occurrence: None)
  Receive Date: 20071029
  Receipt Date: 20071016
  Transmission Date: 20080405
  Serious: Yes (Hospitalization)
  Sender: FDA-Public Use
  Company Number: US-CVT-070169

PATIENT
  Age: 79 Year
  Sex: Male

DRUGS (10)
  1. RANEXA [Suspect]
     Indication: ANGINA PECTORIS
     Dosage: 500 MG, BID, ORAL
     Route: 048
     Dates: start: 20070401, end: 20071015
  2. ASPIRIN [Concomitant]
  3. COREG [Concomitant]
  4. NORVASC /00972401/ (AMLODIPINE) [Concomitant]
  5. PLAVIX (CLOPIDOGRE SULFATE) [Concomitant]
  6. PROTONIX /01263201/ (PANTOPRAZOLE) [Concomitant]
  7. VYTORIN [Concomitant]
  8. XANAX [Concomitant]
  9. FLOMAX/01280302/ (TAMSULOSIN HYDROCHLORIDE) [Concomitant]
  10. NITROGLYCERIN (GLYCERYL TRINITRATE) TRANSDERMAL PATCH [Concomitant]

REACTIONS (3)
  - DUODENITIS [None]
  - EROSIVE OESOPHAGITIS [None]
  - NAUSEA [None]
